FAERS Safety Report 6473526-7 (Version None)
Quarter: 2009Q4

REPORT INFORMATION
  Report Type: 
  Country: None (occurrence: None)
  Receive Date: 20091204
  Receipt Date: 20081121
  Transmission Date: 20100525
  Serious: Yes (Other)
  Sender: FDA-Public Use
  Company Number: US-ELI_LILLY_AND_COMPANY-US200810002081

PATIENT
  Sex: Female
  Weight: 90.703 kg

DRUGS (7)
  1. BYETTA [Suspect]
     Indication: TYPE 2 DIABETES MELLITUS
     Dosage: 5 UG, 2/D
     Route: 058
     Dates: start: 20070925, end: 20070101
  2. BYETTA [Suspect]
     Dosage: 10 UG, 2/D
     Route: 058
     Dates: start: 20070101
  3. BYETTA [Suspect]
     Dosage: 5 UG, 2/D
     Route: 058
  4. BYETTA [Suspect]
     Dosage: 10 UG, 2/D
     Route: 058
  5. BONIVA [Concomitant]
     Dosage: UNK, UNK
     Route: 048
     Dates: start: 20080901, end: 20081031
  6. ANALGESICS [Concomitant]
     Indication: PAIN
     Route: 048
     Dates: start: 20080901
  7. METFORMIN HCL [Concomitant]
     Indication: TYPE 2 DIABETES MELLITUS
     Dosage: 100 MG, 2/D
     Route: 048

REACTIONS (7)
  - BACK PAIN [None]
  - GASTROENTERITIS VIRAL [None]
  - GLYCOSYLATED HAEMOGLOBIN INCREASED [None]
  - INCORRECT DOSE ADMINISTERED [None]
  - MALIGNANT MELANOMA [None]
  - MUSCULOSKELETAL DISCOMFORT [None]
  - NAUSEA [None]
